FAERS Safety Report 16231551 (Version 3)
Quarter: 2019Q4

REPORT INFORMATION
  Report Type: Report from Study
  Country: US (occurrence: US)
  Receive Date: 20190424
  Receipt Date: 20191016
  Transmission Date: 20200122
  Serious: No
  Sender: FDA-Public Use
  Company Number: PHEH2019US017265

PATIENT
  Age: 12 Year
  Sex: Female

DRUGS (2)
  1. TREPROSTINIL. [Suspect]
     Active Substance: TREPROSTINIL
     Indication: PULMONARY ARTERIAL HYPERTENSION
  2. TREPROSTINIL. [Suspect]
     Active Substance: TREPROSTINIL
     Indication: PAIN
     Dosage: 30 NG/KG/MIN
     Route: 042
     Dates: start: 20190412

REACTIONS (5)
  - Nausea [Unknown]
  - Skin irritation [Unknown]
  - Catheter site erythema [Unknown]
  - Diarrhoea [Unknown]
  - Catheter site rash [Unknown]

NARRATIVE: CASE EVENT DATE: 201904
